FAERS Safety Report 10172906 (Version 1)
Quarter: 2014Q2

REPORT INFORMATION
  Report Type: Spontaneous
  Country: US (occurrence: None)
  Receive Date: 20140513
  Receipt Date: 20140513
  Transmission Date: 20141212
  Serious: Yes (Death, Life-Threatening, Hospitalization, Other)
  Sender: FDA-Public Use
  Company Number: 2014AP002912

PATIENT
  Age: 39 Year
  Sex: Male

DRUGS (2)
  1. DILTIAZEM HYDROCHLORIDE (DILTIAZEM) UNKNOWN [Suspect]
     Dosage: EMPTY PILL BOTTLES FOUND, UNKNOWN
  2. METOPROLOL (METOPROLOL) [Suspect]
     Dosage: EMPTY PILL BOTTLES FOUND, UNKNOWN

REACTIONS (4)
  - Cardiac arrest [None]
  - Brain oedema [None]
  - Hyperlipidaemia [None]
  - Laboratory test interference [None]
